FAERS Safety Report 10256727 (Version 4)
Quarter: 2015Q1

REPORT INFORMATION
  Report Type: Report from Study
  Country: PL (occurrence: PL)
  Receive Date: 20140624
  Receipt Date: 20150327
  Transmission Date: 20150720
  Serious: Yes (Hospitalization, Other)
  Sender: FDA-Public Use
  Company Number: PL-JNJFOC-20131002796

PATIENT
  Age: 87 Year
  Sex: Female
  Weight: 64 kg

DRUGS (19)
  1. XARELTO [Suspect]
     Active Substance: RIVAROXABAN
     Indication: CEREBROVASCULAR ACCIDENT PROPHYLAXIS
     Route: 048
     Dates: start: 20130509
  2. IPRES [Concomitant]
     Active Substance: INDAPAMIDE
     Route: 065
     Dates: start: 2012
  3. DIGOXIN. [Concomitant]
     Active Substance: DIGOXIN
     Route: 066
     Dates: start: 20130724
  4. MILURIT [Concomitant]
     Active Substance: ALLOPURINOL
     Route: 065
     Dates: start: 20130802
  5. MILURIT [Concomitant]
     Active Substance: ALLOPURINOL
     Route: 065
     Dates: start: 20130724, end: 20130802
  6. RAMIPRIL. [Concomitant]
     Active Substance: RAMIPRIL
     Route: 065
     Dates: start: 20130802
  7. DIAPREL [Concomitant]
     Active Substance: GLICLAZIDE
     Route: 065
     Dates: start: 2012
  8. METOPROLOL TARTRATE. [Concomitant]
     Active Substance: METOPROLOL TARTRATE
     Route: 065
     Dates: start: 2012, end: 20130723
  9. CONTROLOC [Concomitant]
     Active Substance: PANTOPRAZOLE SODIUM
     Route: 048
     Dates: start: 20130802, end: 20131028
  10. CONTROLOC [Concomitant]
     Active Substance: PANTOPRAZOLE SODIUM
     Route: 048
     Dates: start: 20131028
  11. WARFARIN [Concomitant]
     Active Substance: WARFARIN
     Route: 065
     Dates: start: 201205, end: 20130508
  12. SORBIFER DORULES [Concomitant]
     Route: 065
     Dates: start: 20130724
  13. CANNABIS [Concomitant]
     Active Substance: CANNABIS SATIVA SUBSP. INDICA TOP
     Route: 048
     Dates: start: 20130724
  14. XARELTO [Suspect]
     Active Substance: RIVAROXABAN
     Indication: ATRIAL FIBRILLATION
     Route: 048
     Dates: start: 20130724
  15. XARELTO [Suspect]
     Active Substance: RIVAROXABAN
     Indication: ATRIAL FIBRILLATION
     Route: 048
     Dates: start: 20130509
  16. XARELTO [Suspect]
     Active Substance: RIVAROXABAN
     Indication: CEREBROVASCULAR ACCIDENT PROPHYLAXIS
     Route: 048
     Dates: start: 20130724
  17. METFORMAX [Concomitant]
     Active Substance: METFORMIN HYDROCHLORIDE
     Route: 065
     Dates: start: 2012
  18. RAMIPRIL. [Concomitant]
     Active Substance: RAMIPRIL
     Route: 065
     Dates: start: 2012, end: 20130802
  19. TRIFAS [Concomitant]
     Route: 048
     Dates: start: 20130724

REACTIONS (1)
  - Iron deficiency anaemia [Recovered/Resolved with Sequelae]

NARRATIVE: CASE EVENT DATE: 20130802
